FAERS Safety Report 6271527-5 (Version None)
Quarter: 2009Q3

REPORT INFORMATION
  Report Type: 
  Country: None (occurrence: None)
  Receive Date: 20090717
  Receipt Date: 20090716
  Transmission Date: 20100115
  Serious: Yes (Death, Other)
  Sender: FDA-Public Use
  Company Number: US-PFIZER INC-2009220986

PATIENT
  Sex: Male

DRUGS (2)
  1. DIFLUCAN [Suspect]
  2. PROZAC [Suspect]

REACTIONS (2)
  - COMPLETED SUICIDE [None]
  - MEDICATION ERROR [None]
